FAERS Safety Report 5624657-2 (Version None)
Quarter: 2008Q1

REPORT INFORMATION
  Report Type: 
  Country: None (occurrence: None)
  Receive Date: 20080213
  Receipt Date: 20080131
  Transmission Date: 20080703
  Serious: Yes (Hospitalization, Congenital Anomaly)
  Sender: FDA-Public Use
  Company Number: A0652499A

PATIENT
  Sex: Male
  Weight: 4.2 kg

DRUGS (8)
  1. PAXIL [Suspect]
     Indication: DEPRESSION
     Dosage: 20MG PER DAY
     Dates: start: 20010212, end: 20010913
  2. PROMETHAZINE W/ CODEINE [Concomitant]
     Indication: ANXIETY
     Dosage: 12.5MG THREE TIMES PER DAY
     Dates: start: 20010212, end: 20011001
  3. WELLBUTRIN [Concomitant]
     Indication: DEPRESSION
     Dosage: 150MG PER DAY
     Dates: start: 20010913, end: 20011015
  4. CELEXA [Concomitant]
     Indication: DEPRESSION
     Dosage: 20MG PER DAY
     Dates: start: 20011015
  5. NATALCARE PLUS [Concomitant]
     Indication: PREGNANCY
     Dates: start: 20010101
  6. LORABID [Concomitant]
     Indication: PREGNANCY
     Dates: start: 20010101
  7. TYLENOL (CAPLET) [Concomitant]
  8. ANTACID TAB [Concomitant]

REACTIONS (22)
  - ANXIETY [None]
  - ATRIAL SEPTAL DEFECT [None]
  - BUNDLE BRANCH BLOCK RIGHT [None]
  - CARDIAC MURMUR [None]
  - CARDIOMEGALY [None]
  - DEPRESSION [None]
  - DRUG EXPOSURE DURING PREGNANCY [None]
  - ELECTROCARDIOGRAM PR PROLONGATION [None]
  - EMOTIONAL DISTRESS [None]
  - FEAR [None]
  - HEART SOUNDS ABNORMAL [None]
  - HYPERTROPHIC SCAR [None]
  - KELOID SCAR [None]
  - MITRAL VALVE DISEASE [None]
  - MITRAL VALVE INCOMPETENCE [None]
  - PATENT DUCTUS ARTERIOSUS [None]
  - PECTUS CARINATUM [None]
  - RESPIRATORY DISTRESS [None]
  - RIGHT VENTRICULAR HYPERTROPHY [None]
  - SEPSIS [None]
  - TRICUSPID VALVE INCOMPETENCE [None]
  - VENTRICULAR SEPTAL DEFECT [None]
